FAERS Safety Report 7081216-5 (Version None)
Quarter: 2010Q4

REPORT INFORMATION
  Report Type: 
  Country: None (occurrence: None)
  Receive Date: 20101103
  Receipt Date: 20101028
  Transmission Date: 20110411
  Serious: Yes (Other)
  Sender: FDA-Public Use
  Company Number: CN-ROCHE-737606

PATIENT
  Sex: Female
  Weight: 49 kg

DRUGS (4)
  1. CAPECITABINE [Suspect]
     Indication: GASTRIC CANCER
     Dosage: DOSAGE FORM: PELLET
     Route: 048
     Dates: start: 20100824
  2. CISPLATIN [Suspect]
     Indication: GASTRIC CANCER
     Route: 042
     Dates: start: 20100824
  3. MAREVAN [Concomitant]
     Dates: start: 20100813, end: 20101025
  4. FRAGMIN [Concomitant]
     Dates: start: 20100813, end: 20100827

REACTIONS (3)
  - BONE MARROW FAILURE [None]
  - HAEMORRHAGE [None]
  - INTESTINAL OBSTRUCTION [None]
